FAERS Safety Report 17460299 (Version 2)
Quarter: 2020Q1

REPORT INFORMATION
  Report Type: Spontaneous
  Country: US (occurrence: US)
  Receive Date: 20200226
  Receipt Date: 20200312
  Transmission Date: 20200409
  Serious: No
  Sender: FDA-Public Use
  Company Number: US-PFIZER INC-2020084452

PATIENT
  Age: 70 Year
  Sex: Female
  Weight: 70 kg

DRUGS (4)
  1. ATORVASTATIN CALCIUM. [Suspect]
     Active Substance: ATORVASTATIN CALCIUM
     Dosage: UNK
  2. LETROZOLE. [Concomitant]
     Active Substance: LETROZOLE
     Dosage: UNK
     Dates: start: 2012
  3. ALENDRONATE [Concomitant]
     Active Substance: ALENDRONATE SODIUM
     Dosage: UNK
     Dates: start: 2019
  4. LEVOTHYROXINE. [Concomitant]
     Active Substance: LEVOTHYROXINE
     Dosage: UNK
     Dates: start: 2000

REACTIONS (2)
  - Myalgia [Unknown]
  - Gait disturbance [Recovering/Resolving]
